FAERS Safety Report 20711518 (Version 1)
Quarter: 2022Q2

REPORT INFORMATION
  Report Type: Spontaneous
  Country: US (occurrence: None)
  Receive Date: 20220414
  Receipt Date: 20220414
  Transmission Date: 20220721
  Serious: No
  Sender: FDA-Public Use
  Company Number: None

PATIENT
  Age: 30 Year
  Sex: Female
  Weight: 90.72 kg

DRUGS (1)
  1. TREMFYA [Suspect]
     Active Substance: GUSELKUMAB
     Indication: Psoriasis
     Dosage: INJECT 100 MG SUBCUTANEOUSLY ON WEEK 0 AND WEEK 4 AS DIRECTED.
     Route: 058
     Dates: start: 202104

REACTIONS (3)
  - Pregnancy [None]
  - Drug exposure before pregnancy [None]
  - Therapy interrupted [None]
